FAERS Safety Report 5627568-1 (Version None)
Quarter: 2008Q1

REPORT INFORMATION
  Report Type: 
  Country: None (occurrence: None)
  Receive Date: 20080215
  Receipt Date: 20080118
  Transmission Date: 20080703
  Serious: No
  Sender: FDA-Public Use
  Company Number: A0702431A

PATIENT
  Age: 73 Year
  Sex: Male
  Weight: 72.7 kg

DRUGS (8)
  1. COREG CR [Suspect]
     Dosage: 20MG PER DAY
     Route: 048
     Dates: start: 20070717
  2. ENALAPRIL MALEATE [Concomitant]
     Indication: HYPERTENSION
     Dosage: 5MG TWICE PER DAY
     Route: 048
     Dates: start: 20070712
  3. AMIODARONE HCL [Concomitant]
     Dosage: 100MG PER DAY
  4. CLONAZEPAM [Concomitant]
     Dosage: 5MG AT NIGHT
  5. LIPITOR [Concomitant]
     Dosage: 10MG PER DAY
  6. ZETIA [Concomitant]
     Dosage: 10MG PER DAY
     Route: 048
  7. ASPIRIN [Concomitant]
     Dosage: 162MG PER DAY
  8. RESTASIS [Concomitant]
     Dosage: 1DROP TWICE PER DAY

REACTIONS (2)
  - HEART RATE DECREASED [None]
  - HYPOTENSION [None]
